FAERS Safety Report 13365652 (Version 1)
Quarter: 2017Q1

REPORT INFORMATION
  Report Type: Spontaneous
  Country: US (occurrence: US)
  Receive Date: 20170323
  Receipt Date: 20170323
  Transmission Date: 20170429
  Serious: No
  Sender: FDA-Public Use
  Company Number: US-WARNER CHILCOTT-2016-001699

PATIENT
  Sex: Female

DRUGS (2)
  1. ESTRACE [Suspect]
     Active Substance: ESTRADIOL
     Indication: VAGINAL DISORDER
     Dosage: 1 DF, SINGLE
     Route: 067
     Dates: start: 2016, end: 2016
  2. ESTRACE [Suspect]
     Active Substance: ESTRADIOL
     Dosage: 1 DF, QOD
     Route: 067
     Dates: start: 201606, end: 2016

REACTIONS (1)
  - Genital blister [Recovered/Resolved]

NARRATIVE: CASE EVENT DATE: 201606
